FAERS Safety Report 17447440 (Version 4)
Quarter: 2020Q2

REPORT INFORMATION
  Report Type: Spontaneous
  Country: US (occurrence: US)
  Receive Date: 20200221
  Receipt Date: 20200428
  Transmission Date: 20200713
  Serious: Yes (Other)
  Sender: FDA-Public Use
  Company Number: NVSC2020US043070

PATIENT
  Sex: Female

DRUGS (1)
  1. BEOVU [Suspect]
     Active Substance: BROLUCIZUMAB-DBLL
     Indication: PRODUCT USED FOR UNKNOWN INDICATION
     Dosage: 6 MG, QMO
     Route: 047
     Dates: start: 20200127, end: 20200213

REACTIONS (4)
  - Inflammation [Unknown]
  - Visual acuity reduced [Unknown]
  - Vitreous haze [Unknown]
  - Vitreous floaters [Unknown]
